FAERS Safety Report 12472243 (Version 2)
Quarter: 2016Q3

REPORT INFORMATION
  Report Type: Spontaneous
  Country: US (occurrence: US)
  Receive Date: 20160616
  Receipt Date: 20160812
  Transmission Date: 20161109
  Serious: Yes (Hospitalization, Other)
  Sender: FDA-Public Use
  Company Number: US-009507513-1201USA00763

PATIENT
  Sex: Female

DRUGS (3)
  1. BONIVA [Suspect]
     Active Substance: IBANDRONATE SODIUM
     Indication: OSTEOPOROSIS
     Dosage: 150 MG, QM
     Route: 048
     Dates: start: 20090310, end: 20110829
  2. FOSAMAX PLUS D [Suspect]
     Active Substance: ALENDRONATE SODIUM\CHOLECALCIFEROL
     Indication: OSTEOPOROSIS
     Dosage: 70MG/2800IU, QW
     Route: 048
     Dates: start: 200601, end: 200903
  3. FOSAMAX [Suspect]
     Active Substance: ALENDRONATE SODIUM
     Indication: OSTEOPOROSIS
     Dosage: 70 MG, UNKNOWN
     Route: 048
     Dates: start: 199709, end: 200903

REACTIONS (23)
  - Transfusion [Unknown]
  - Cardiac murmur [Not Recovered/Not Resolved]
  - Medical device removal [Unknown]
  - Anaemia [Recovering/Resolving]
  - Femur fracture [Unknown]
  - Gastrooesophageal reflux disease [Not Recovered/Not Resolved]
  - Osteoarthritis [Not Recovered/Not Resolved]
  - Hypocholesterolaemia [Not Recovered/Not Resolved]
  - Transient ischaemic attack [Unknown]
  - Jaw disorder [Unknown]
  - Intramedullary rod insertion [Unknown]
  - Lethargy [Unknown]
  - Knee arthroplasty [Unknown]
  - Ulcer [Unknown]
  - Cholecystectomy [Unknown]
  - Hypertension [Not Recovered/Not Resolved]
  - Knee arthroplasty [Unknown]
  - Diabetes mellitus [Not Recovered/Not Resolved]
  - Femur fracture [Recovered/Resolved]
  - Cataract [Unknown]
  - Scoliosis [Not Recovered/Not Resolved]
  - Hypokalaemia [Unknown]
  - Hypotension [Unknown]

NARRATIVE: CASE EVENT DATE: 19971017
